FAERS Safety Report 18636506 (Version 1)
Quarter: 2020Q4

REPORT INFORMATION
  Report Type: Spontaneous
  Country: US (occurrence: US)
  Receive Date: 20201218
  Receipt Date: 20201218
  Transmission Date: 20210114
  Serious: Yes (Other)
  Sender: FDA-Public Use
  Company Number: US-GUERBET-US-20200189

PATIENT
  Age: 46 Year
  Sex: Male
  Weight: 60.78 kg

DRUGS (3)
  1. OPTIRAY 350 [Suspect]
     Active Substance: IOVERSOL
     Indication: COMPUTERISED TOMOGRAM ABDOMEN
     Route: 042
     Dates: start: 20201203, end: 20201203
  2. OPTIRAY 350 [Suspect]
     Active Substance: IOVERSOL
     Indication: COMPUTERISED TOMOGRAM THORAX
  3. OXCARBAZEPINE. [Concomitant]
     Active Substance: OXCARBAZEPINE
     Indication: PRODUCT USED FOR UNKNOWN INDICATION
     Route: 065

REACTIONS (2)
  - Urticaria [Recovered/Resolved]
  - Swelling of eyelid [Recovered/Resolved]

NARRATIVE: CASE EVENT DATE: 20201203
